FAERS Safety Report 7053417-3 (Version None)
Quarter: 2010Q4

REPORT INFORMATION
  Report Type: 
  Country: None (occurrence: None)
  Receive Date: 20101014
  Receipt Date: 20101007
  Transmission Date: 20110411
  Serious: Yes (Hospitalization)
  Sender: FDA-Public Use
  Company Number: 2010SP053519

PATIENT
  Sex: Female

DRUGS (2)
  1. REMERON [Suspect]
     Indication: DEPRESSION
     Dosage: 1 DF; HS; PO, 1 DF; HS; PO
     Route: 048
     Dates: start: 20100901
  2. DULOXETINE HYDROCHLORIDE [Suspect]
     Indication: DEPRESSION
     Dosage: 1 DF; QAM
     Dates: start: 20100901

REACTIONS (1)
  - DEEP VEIN THROMBOSIS [None]
